FAERS Safety Report 8388282-5 (Version None)
Quarter: 2012Q2

REPORT INFORMATION
  Report Type: 
  Country: None (occurrence: None)
  Receive Date: 20120525
  Receipt Date: 20120510
  Transmission Date: 20120825
  Serious: Yes (Hospitalization)
  Sender: FDA-Public Use
  Company Number: CHPA2012US010885

PATIENT
  Age: 86 Year
  Sex: Female

DRUGS (1)
  1. BENEFIBER W/ WHEAT DEXTRIN [Suspect]
     Indication: CONSTIPATION
     Dosage: 2 TSP, TID
     Route: 048
     Dates: start: 20110101

REACTIONS (4)
  - ABDOMINAL PAIN UPPER [None]
  - DIVERTICULUM [None]
  - DECREASED APPETITE [None]
  - OFF LABEL USE [None]
